FAERS Safety Report 25860549 (Version 1)
Quarter: 2025Q3

REPORT INFORMATION
  Report Type: Spontaneous
  Country: US (occurrence: US)
  Receive Date: 20250929
  Receipt Date: 20250929
  Transmission Date: 20251020
  Serious: No
  Sender: STRIDES
  Company Number: US-STRIDES ARCOLAB LIMITED-2025SP010652

PATIENT
  Age: 64 Year
  Sex: Female

DRUGS (4)
  1. PREDNISONE [Suspect]
     Active Substance: PREDNISONE
     Indication: Obstructive airways disorder
     Route: 065
  2. AZITHROMYCIN [Suspect]
     Active Substance: AZITHROMYCIN
     Indication: Obstructive airways disorder
     Route: 065
  3. GUAIFENESIN [Suspect]
     Active Substance: GUAIFENESIN
     Indication: Obstructive airways disorder
     Route: 065
  4. UPADACITINIB [Concomitant]
     Active Substance: UPADACITINIB
     Indication: Psoriatic arthropathy
     Route: 065

REACTIONS (1)
  - Drug ineffective for unapproved indication [Unknown]
